FAERS Safety Report 8314674-6 (Version None)
Quarter: 2012Q2

REPORT INFORMATION
  Report Type: 
  Country: None (occurrence: None)
  Receive Date: 20120426
  Receipt Date: 20120419
  Transmission Date: 20120825
  Serious: Yes (Hospitalization, Other)
  Sender: FDA-Public Use
  Company Number: US-ELI_LILLY_AND_COMPANY-US201204007476

PATIENT
  Sex: Male

DRUGS (15)
  1. CYMBALTA [Suspect]
     Dosage: 120 MG, QD
  2. METOPROLOL TARTRATE [Concomitant]
  3. CYMBALTA [Suspect]
     Dosage: 80 MG, QD
  4. ENALAPRIL MALEATE [Concomitant]
  5. LOVASTATIN [Concomitant]
  6. LIDODERM [Concomitant]
  7. ZETIA [Concomitant]
  8. DIVALPROEX SODIUM [Concomitant]
  9. CYMBALTA [Suspect]
     Dosage: 60 MG, TID
     Dates: end: 20120301
  10. CYMBALTA [Suspect]
     Indication: DEPRESSION
     Dosage: 40 MG, QD
     Dates: start: 20040101
  11. AMLODIPINE [Concomitant]
  12. CYMBALTA [Suspect]
     Dosage: 60 MG, QD
  13. ACTOS [Concomitant]
  14. TAMSULOSIN HCL [Concomitant]
  15. GLIPIZIDE [Concomitant]

REACTIONS (12)
  - FATIGUE [None]
  - THINKING ABNORMAL [None]
  - HYPOAESTHESIA [None]
  - HOSPITALISATION [None]
  - DEPRESSION [None]
  - BIPOLAR DISORDER [None]
  - GAIT DISTURBANCE [None]
  - PAIN IN EXTREMITY [None]
  - NECK PAIN [None]
  - RASH [None]
  - OVERDOSE [None]
  - SUICIDAL IDEATION [None]
